FAERS Safety Report 8945315 (Version 1)
Quarter: 2012Q4

REPORT INFORMATION
  Report Type: 
  Country: US (occurrence: US)
  Receive Date: 20121204
  Receipt Date: 20121204
  Transmission Date: 20130627
  Serious: No
  Sender: FDA-Public Use
  Company Number: US-AMGEN-USASP2012074126

PATIENT
  Age: 47 Year
  Sex: Female

DRUGS (3)
  1. ENBREL [Suspect]
     Indication: RHEUMATOID ARTHRITIS
     Dosage: 50 mg, qwk
     Dates: start: 201210
  2. PLAQUENIL                          /00072603/ [Concomitant]
     Dosage: 200 mg, bid
  3. METHOTREXATE [Concomitant]
     Dosage: 2.5 mg, 6 tabs once week
     Dates: start: 201203

REACTIONS (4)
  - Pyrexia [Unknown]
  - Eye irritation [Unknown]
  - Pain [Not Recovered/Not Resolved]
  - Influenza [Unknown]
